FAERS Safety Report 9424492 (Version 1)
Quarter: 2013Q3

REPORT INFORMATION
  Report Type: Spontaneous
  Country: US (occurrence: US)
  Receive Date: 20130729
  Receipt Date: 20130729
  Transmission Date: 20140515
  Serious: Yes (Hospitalization, Other)
  Sender: FDA-Public Use
  Company Number: US-SANOFI-AVENTIS-2013SA075274

PATIENT
  Sex: Female

DRUGS (4)
  1. LANTUS [Suspect]
     Route: 065
  2. LANTUS SOLOSTAR [Suspect]
     Route: 065
  3. SOLOSTAR [Suspect]
  4. LEVEMIR [Concomitant]

REACTIONS (6)
  - Speech disorder [Unknown]
  - Morbid thoughts [Unknown]
  - Hyperglycaemia [Unknown]
  - Feeling abnormal [Unknown]
  - Somnolence [Unknown]
  - Nervous system disorder [Unknown]
